FAERS Safety Report 9010064 (Version 2)
Quarter: 2013Q1

REPORT INFORMATION
  Report Type: Spontaneous
  Country: JP (occurrence: JP)
  Receive Date: 20130110
  Receipt Date: 20130118
  Transmission Date: 20140127
  Serious: No
  Sender: FDA-Public Use
  Company Number: JP-VERTEX PHARMACEUTICALS INC.-2013-000398

PATIENT
  Age: 68 Year
  Sex: Male

DRUGS (3)
  1. TELAVIC [Suspect]
     Dosage: 1500 MG, QD
     Route: 048
     Dates: start: 20121203, end: 20130101
  2. PEGINTRON                          /01543001/ [Suspect]
     Dosage: 100 ?G, UNK
     Route: 058
     Dates: start: 20121203, end: 20121225
  3. REBETOL [Suspect]
     Dosage: 800 MG, QD
     Route: 048
     Dates: start: 20121203, end: 20130101

REACTIONS (2)
  - Depression [Unknown]
  - Rash [Unknown]
